FAERS Safety Report 4765910-4 (Version None)
Quarter: 2005Q3

REPORT INFORMATION
  Report Type: 
  Country: None (occurrence: None)
  Receive Date: 20050906
  Receipt Date: 20050818
  Transmission Date: 20060218
  Serious: Yes (Hospitalization)
  Sender: FDA-Public Use
  Company Number: USA0508105921

PATIENT
  Age: 71 Year
  Sex: Male
  Weight: 89 kg

DRUGS (8)
  1. ZYPREXA [Suspect]
     Indication: DEPRESSION
     Dosage: 10 MG
     Dates: start: 20040901
  2. HUMALOG MIX 75/25 [Concomitant]
  3. DURAGESIC-100 [Concomitant]
  4. RELAFEN (BABUMETONE) [Concomitant]
  5. SYNTHROID [Concomitant]
  6. AVANDIA [Concomitant]
  7. PRINIVIL [Concomitant]
  8. LOPRESSOR [Concomitant]

REACTIONS (8)
  - ABNORMAL BEHAVIOUR [None]
  - AGITATION [None]
  - ANXIETY [None]
  - DELUSION [None]
  - LETHARGY [None]
  - MENTAL DISORDER [None]
  - PSYCHOTIC DISORDER [None]
  - SLEEP DISORDER [None]
